FAERS Safety Report 10442204 (Version 2)
Quarter: 2014Q3

REPORT INFORMATION
  Report Type: Report from Study
  Country: IT (occurrence: IT)
  Receive Date: 20140909
  Receipt Date: 20140912
  Transmission Date: 20150326
  Serious: Yes (Death)
  Sender: FDA-Public Use
  Company Number: PHHY2014IT110311

PATIENT
  Age: 66 Year
  Sex: Female

DRUGS (8)
  1. LAMIVUDINE. [Concomitant]
     Active Substance: LAMIVUDINE
     Dates: start: 20120111
  2. SOFOSBUVIR [Suspect]
     Active Substance: SOFOSBUVIR
     Dosage: 400 MG, QD
     Route: 048
     Dates: start: 20140321
  3. RIBAVIRIN. [Suspect]
     Active Substance: RIBAVIRIN
     Indication: CHRONIC HEPATITIS C
     Dosage: 800 MG, QD
     Dates: start: 20140321, end: 20140716
  4. MYCOPHENOLATE MOFETIL. [Concomitant]
     Active Substance: MYCOPHENOLATE MOFETIL
     Dates: start: 20140101
  5. LACTULOSE. [Concomitant]
     Active Substance: LACTULOSE
     Dates: start: 20131215
  6. PREDNISONE. [Concomitant]
     Active Substance: PREDNISONE
     Dates: start: 20120611
  7. RIFAXIMINA [Concomitant]
     Dates: start: 20131215
  8. CLONIDINE. [Concomitant]
     Active Substance: CLONIDINE
     Dates: start: 20120411

REACTIONS (1)
  - Death [Fatal]

NARRATIVE: CASE EVENT DATE: 20140716
